FAERS Safety Report 25324126 (Version 1)
Quarter: 2025Q2

REPORT INFORMATION
  Report Type: Spontaneous
  Country: US (occurrence: US)
  Receive Date: 20250516
  Receipt Date: 20250516
  Transmission Date: 20250716
  Serious: No
  Sender: INNOGENIX, LLC
  Company Number: US-Innogenix, LLC-2176878

PATIENT

DRUGS (25)
  1. PROPRANOLOL HYDROCHLORIDE [Suspect]
     Active Substance: PROPRANOLOL HYDROCHLORIDE
     Indication: Fibromyalgia
  2. BACLOFEN [Suspect]
     Active Substance: BACLOFEN
  3. CELECOXIB [Concomitant]
     Active Substance: CELECOXIB
  4. MELOXICAM [Concomitant]
     Active Substance: MELOXICAM
  5. INDOMETHACIN [Concomitant]
     Active Substance: INDOMETHACIN
  6. KETOROLAC [Concomitant]
     Active Substance: KETOROLAC TROMETHAMINE
  7. DICLOFENAC SODIUM [Concomitant]
     Active Substance: DICLOFENAC SODIUM
  8. BUPRENORPHINE [Concomitant]
     Active Substance: BUPRENORPHINE
  9. CARISOPRODOL [Concomitant]
     Active Substance: CARISOPRODOL
  10. QUETIAPINE [Concomitant]
     Active Substance: QUETIAPINE
  11. BUSPIRONE [Concomitant]
     Active Substance: BUSPIRONE HYDROCHLORIDE
  12. ACETAMINOPHEN [Concomitant]
     Active Substance: ACETAMINOPHEN
  13. METHOCARBAMOL [Concomitant]
     Active Substance: METHOCARBAMOL
  14. NORTRIPTYLINE HYDROCHLORIDE [Concomitant]
     Active Substance: NORTRIPTYLINE HYDROCHLORIDE
  15. AMITRIPTYLINE HYDROCHLORIDE [Concomitant]
     Active Substance: AMITRIPTYLINE HYDROCHLORIDE
  16. TIZANIDINE [Concomitant]
     Active Substance: TIZANIDINE
  17. CYCLOBENZAPRINE [Concomitant]
     Active Substance: CYCLOBENZAPRINE
  18. VOLTAREN [Concomitant]
     Active Substance: DICLOFENAC SODIUM
  19. GABAPENTIN [Concomitant]
     Active Substance: GABAPENTIN
  20. DULOXETINE [Concomitant]
     Active Substance: DULOXETINE
  21. NALTREXONE HYDROCHLORIDE [Concomitant]
     Active Substance: NALTREXONE HYDROCHLORIDE
  22. PREGABALIN [Concomitant]
     Active Substance: PREGABALIN
  23. NAPROXEN [Concomitant]
     Active Substance: NAPROXEN
  24. ASPIRIN [Concomitant]
     Active Substance: ASPIRIN
  25. IBUPROFEN [Concomitant]
     Active Substance: IBUPROFEN

REACTIONS (2)
  - Drug ineffective [Unknown]
  - Drug ineffective for unapproved indication [Unknown]
